FAERS Safety Report 6385466-2 (Version None)
Quarter: 2009Q4

REPORT INFORMATION
  Report Type: 
  Country: None (occurrence: None)
  Receive Date: 20091002
  Receipt Date: 20080918
  Transmission Date: 20100525
  Serious: No
  Sender: FDA-Public Use
  Company Number: US-ASTRAZENECA-2008UW19427

PATIENT
  Age: 78 Year
  Sex: Female
  Weight: 77.1 kg

DRUGS (6)
  1. ARIMIDEX [Suspect]
     Indication: BREAST CANCER
     Route: 048
     Dates: start: 20000101
  2. HYZAAR [Concomitant]
  3. FOSAMAX [Concomitant]
  4. VITAMINS AND MINERAL [Concomitant]
  5. CALCIUM [Concomitant]
  6. KLONOPIN [Concomitant]

REACTIONS (4)
  - ABDOMINAL PAIN [None]
  - FATIGUE [None]
  - FREQUENT BOWEL MOVEMENTS [None]
  - POOR QUALITY SLEEP [None]
